FAERS Safety Report 6466358-7 (Version None)
Quarter: 2009Q4

REPORT INFORMATION
  Report Type: 
  Country: None (occurrence: None)
  Receive Date: 20091202
  Receipt Date: 20091123
  Transmission Date: 20100525
  Serious: Yes (Other)
  Sender: FDA-Public Use
  Company Number: GB-NOVOPROD-292010

PATIENT
  Sex: Male
  Weight: 75 kg

DRUGS (5)
  1. NOVOLOG [Suspect]
     Indication: TYPE 1 DIABETES MELLITUS
     Dosage: 4 IU, TID (3 TO 5)
     Route: 058
  2. LEVEMIR [Suspect]
     Indication: TYPE 1 DIABETES MELLITUS
     Dosage: 19 IU, QD (13 + 6)
     Route: 058
  3. NOVORAPID PENFILL [Suspect]
     Indication: TYPE 1 DIABETES MELLITUS
     Dosage: 4 IU, TID (3 TO 5)
     Route: 058
  4. GLUCAGEN [Concomitant]
     Dosage: 1 MG, UNK
  5. DOXYCYCLINE HYCLATE [Concomitant]
     Dosage: UNK

REACTIONS (3)
  - BLOOD GLUCOSE INCREASED [None]
  - DEHYDRATION [None]
  - INCORRECT STORAGE OF DRUG [None]
